FAERS Safety Report 19488356 (Version 3)
Quarter: 2021Q3

REPORT INFORMATION
  Report Type: Report from Study
  Country: US (occurrence: US)
  Receive Date: 20210702
  Receipt Date: 20210721
  Transmission Date: 20211014
  Serious: No
  Sender: FDA-Public Use
  Company Number: US-AGIOS-2106US02913

PATIENT

DRUGS (4)
  1. REMERON [Concomitant]
     Active Substance: MIRTAZAPINE
  2. PEPCID [Concomitant]
     Active Substance: FAMOTIDINE
  3. TIBSOVO [Suspect]
     Active Substance: IVOSIDENIB
     Indication: BRAIN NEOPLASM MALIGNANT
     Dosage: 250 MILLIGRAM, 2 TABLETS (500 MG) DAILY
  4. KEPPRA [Concomitant]
     Active Substance: LEVETIRACETAM

REACTIONS (3)
  - Inappropriate schedule of product administration [Unknown]
  - Off label use [Unknown]
  - Increased tendency to bruise [Unknown]
